FAERS Safety Report 22331274 (Version 2)
Quarter: 2023Q2

REPORT INFORMATION
  Report Type: Spontaneous
  Country: US (occurrence: US)
  Receive Date: 20230517
  Receipt Date: 20230630
  Transmission Date: 20230721
  Serious: No
  Sender: FDA-Public Use
  Company Number: US-PFIZER INC-202300188146

PATIENT
  Age: 15 Year
  Sex: Male
  Weight: 56.25 kg

DRUGS (6)
  1. GENOTROPIN [Suspect]
     Active Substance: SOMATROPIN
     Indication: Growth disorder
     Dosage: UNK (STARTER DOSE WAS 0.8)
  2. GENOTROPIN [Suspect]
     Active Substance: SOMATROPIN
     Dosage: 1.6 MG, DAILY (MAINTENANCE DOSE OF 1.6 (1.6 MILLIGRAM))
  3. ABILIFY [Concomitant]
     Active Substance: ARIPIPRAZOLE
     Indication: Disruptive mood dysregulation disorder
     Dosage: 7.5 MG, 1X/DAY
  4. CLONIDINE [Concomitant]
     Active Substance: CLONIDINE
     Indication: Anxiety
     Dosage: 0.1 MG, 1X/DAY
  5. LAMOTRIGINE [Concomitant]
     Active Substance: LAMOTRIGINE
     Indication: Disruptive mood dysregulation disorder
     Dosage: 25 MG, 2X/DAY
  6. VYVANSE [Concomitant]
     Active Substance: LISDEXAMFETAMINE DIMESYLATE
     Indication: Attention deficit hyperactivity disorder
     Dosage: 30 MG, 1X/DAY

REACTIONS (4)
  - Poor quality device used [Unknown]
  - Product solubility abnormal [Unknown]
  - Device mechanical issue [Unknown]
  - Device delivery system issue [Unknown]
